FAERS Safety Report 5431660-4 (Version None)
Quarter: 2007Q3

REPORT INFORMATION
  Report Type: 
  Country: None (occurrence: None)
  Receive Date: 20070830
  Receipt Date: 20070821
  Transmission Date: 20080115
  Serious: Yes (Hospitalization)
  Sender: FDA-Public Use
  Company Number: GB-SANOFI-SYNTHELABO-A01200709394

PATIENT
  Sex: Male

DRUGS (2)
  1. OXALIPLATIN [Suspect]
     Dates: start: 20070723, end: 20070723
  2. XELODA [Suspect]
     Dates: start: 20070723, end: 20070730

REACTIONS (1)
  - CARDIOGENIC SHOCK [None]
